FAERS Safety Report 7073590-0 (Version None)
Quarter: 2010Q4

REPORT INFORMATION
  Report Type: 
  Country: None (occurrence: None)
  Receive Date: 20101029
  Receipt Date: 20100714
  Transmission Date: 20110411
  Serious: No
  Sender: FDA-Public Use
  Company Number: A0870445A

PATIENT
  Age: 65 Year
  Sex: Female

DRUGS (7)
  1. ADVAIR DISKUS 100/50 [Suspect]
     Indication: CHRONIC OBSTRUCTIVE PULMONARY DISEASE
     Dosage: 1PUFF PER DAY
     Route: 055
  2. SPIRIVA [Concomitant]
  3. PROVENTIL [Concomitant]
  4. METOPROLOL [Concomitant]
  5. LISINOPRIL [Concomitant]
  6. CLONAZEPAM [Concomitant]
  7. NEBULIZER [Concomitant]

REACTIONS (12)
  - DYSPHAGIA [None]
  - DYSPHONIA [None]
  - EYE PAIN [None]
  - NAUSEA [None]
  - NERVOUSNESS [None]
  - NIGHT SWEATS [None]
  - OROPHARYNGEAL SPASM [None]
  - PALPITATIONS [None]
  - SECRETION DISCHARGE [None]
  - THROAT IRRITATION [None]
  - VISION BLURRED [None]
  - VOMITING [None]
